FAERS Safety Report 10655433 (Version 1)
Quarter: 2014Q4

REPORT INFORMATION
  Report Type: Spontaneous
  Country: US (occurrence: US)
  Receive Date: 20141216
  Receipt Date: 20141216
  Transmission Date: 20150529
  Serious: No
  Sender: FDA-Public Use
  Company Number: US-BAYER-2014-184670

PATIENT
  Age: 83 Year
  Sex: Female
  Weight: 54 kg

DRUGS (9)
  1. MECLIZINE [Concomitant]
     Active Substance: MECLIZINE\MECLIZINE HYDROCHLORIDE
  2. ALEVE [Suspect]
     Active Substance: NAPROXEN SODIUM
     Indication: BACK PAIN
     Dosage: 1 DF, BID
     Route: 048
     Dates: start: 201411
  3. RALOXIFENE [Concomitant]
     Active Substance: RALOXIFENE
  4. LEVOTHYROXINE [Concomitant]
     Active Substance: LEVOTHYROXINE
  5. BAYER LOW DOSE [Concomitant]
     Active Substance: ASPIRIN
     Indication: ISCHAEMIC HEART DISEASE PROPHYLAXIS
     Dosage: 1 DF, QD
     Route: 048
  6. FISH OIL [Concomitant]
     Active Substance: FISH OIL
  7. METOPROLOL [Concomitant]
     Active Substance: METOPROLOL
  8. SIMVASTATIN. [Concomitant]
     Active Substance: SIMVASTATIN
  9. ZETIA [Concomitant]
     Active Substance: EZETIMIBE

REACTIONS (1)
  - Incorrect drug administration duration [None]

NARRATIVE: CASE EVENT DATE: 201411
